FAERS Safety Report 6336259-3 (Version None)
Quarter: 2009Q3

REPORT INFORMATION
  Report Type: 
  Country: None (occurrence: None)
  Receive Date: 20090901
  Receipt Date: 20090820
  Transmission Date: 20100115
  Serious: Yes (Hospitalization, Other)
  Sender: FDA-Public Use
  Company Number: DK-PFIZER INC-2009257822

PATIENT

DRUGS (4)
  1. ZITHROMAX [Suspect]
     Indication: LOCALISED INFECTION
     Dosage: 250 MG, UNK
     Dates: start: 20080101, end: 20080101
  2. SPORANOX [Concomitant]
  3. BRICANYL [Concomitant]
     Indication: ASTHMA
  4. ALL OTHER THERAPEUTIC PRODUCTS [Concomitant]
     Indication: ASTHMA

REACTIONS (4)
  - PHARYNGEAL HAEMORRHAGE [None]
  - PHARYNGEAL OEDEMA [None]
  - THROAT IRRITATION [None]
  - TINNITUS [None]
